FAERS Safety Report 9728670 (Version 2)
Quarter: 2013Q4

REPORT INFORMATION
  Report Type: Spontaneous
  Country: US (occurrence: US)
  Receive Date: 20131204
  Receipt Date: 20131206
  Transmission Date: 20140711
  Serious: No
  Sender: FDA-Public Use
  Company Number: US-PFIZER INC-2013345740

PATIENT
  Age: 74 Year
  Sex: Female
  Weight: 86.17 kg

DRUGS (1)
  1. LYRICA [Suspect]
     Indication: BACK PAIN
     Dosage: 50 MG, 2X/DAY
     Route: 048
     Dates: start: 20131127

REACTIONS (4)
  - Off label use [Unknown]
  - Oral herpes [Unknown]
  - Condition aggravated [Unknown]
  - Herpes zoster [Unknown]
